FAERS Safety Report 6886801-9 (Version None)
Quarter: 2010Q3

REPORT INFORMATION
  Report Type: 
  Country: None (occurrence: None)
  Receive Date: 20100730
  Receipt Date: 20100719
  Transmission Date: 20110219
  Serious: Yes (Other)
  Sender: FDA-Public Use
  Company Number: CH-PFIZER INC-2010090171

PATIENT
  Age: 45 Year
  Sex: Female

DRUGS (4)
  1. LYRICA [Suspect]
     Indication: GENERALISED ANXIETY DISORDER
     Dosage: 150 MG, 1X/DAY
  2. LYRICA [Suspect]
     Dosage: 50 MG, 1X/DAY
  3. BUSPAR [Concomitant]
     Dosage: UNK
  4. ZOLOFT [Concomitant]
     Dosage: UNK

REACTIONS (4)
  - CONJUNCTIVITIS [None]
  - DRUG INEFFECTIVE [None]
  - ECZEMA [None]
  - EYELID OEDEMA [None]
